FAERS Safety Report 6260158-9 (Version None)
Quarter: 2009Q3

REPORT INFORMATION
  Report Type: 
  Country: None (occurrence: None)
  Receive Date: 20090708
  Receipt Date: 20090630
  Transmission Date: 20100115
  Serious: Yes (Other)
  Sender: FDA-Public Use
  Company Number: A0794677A

PATIENT
  Sex: Female

DRUGS (1)
  1. TREXIMET [Suspect]
     Indication: MIGRAINE
     Dosage: 1TAB SINGLE DOSE
     Route: 048
     Dates: start: 20090101, end: 20090101

REACTIONS (4)
  - FACIAL PARESIS [None]
  - HYPOAESTHESIA FACIAL [None]
  - NAUSEA [None]
  - NEUROLOGICAL SYMPTOM [None]
